FAERS Safety Report 4342129-2 (Version None)
Quarter: 2004Q2

REPORT INFORMATION
  Report Type: 
  Country: None (occurrence: None)
  Receive Date: 20040409
  Receipt Date: 20040122
  Transmission Date: 20050107
  Serious: Yes (Hospitalization)
  Sender: FDA-Public Use
  Company Number: 03P-163-0234575-00

PATIENT
  Age: 45 Year
  Sex: Female

DRUGS (8)
  1. DEPAKOTE [Suspect]
     Indication: NERVOUS SYSTEM DISORDER
     Dosage: 500 MG, 2 IN 1 D, PER ORAL
     Route: 048
     Dates: start: 19930101
  2. DEPAKOTE [Suspect]
     Indication: SARCOIDOSIS
     Dosage: 500 MG, 2 IN 1 D, PER ORAL
     Route: 048
     Dates: start: 19930101
  3. EPOGEN [Concomitant]
  4. FOLIC ACID [Concomitant]
  5. CALCIUM GLUCONATE [Concomitant]
  6. ACETAMINOPHEN [Concomitant]
  7. VITAMIN B COMPLEX CAP [Concomitant]
  8. ASCORBIC ACID [Concomitant]

REACTIONS (2)
  - ANOREXIA [None]
  - PANCREATITIS [None]
